FAERS Safety Report 4592034-1 (Version None)
Quarter: 2005Q1

REPORT INFORMATION
  Report Type: 
  Country: None (occurrence: None)
  Receive Date: 20050225
  Receipt Date: 20050221
  Transmission Date: 20050727
  Serious: Yes (Life-Threatening)
  Sender: FDA-Public Use
  Company Number: 12864229

PATIENT
  Age: 51 Year
  Sex: Male

DRUGS (10)
  1. COMBIVIR [Suspect]
     Indication: HIV INFECTION
     Dosage: 1TAB TWICE PER DAY
     Route: 048
     Dates: start: 20040428, end: 20041013
  2. ATAZANAVIR [Suspect]
     Indication: HIV INFECTION
     Dosage: 400MG PER DAY
     Route: 048
     Dates: start: 20040428, end: 20041013
  3. ALLEGRA-D [Concomitant]
     Dates: start: 20031027
  4. SUMATRIPTAN [Concomitant]
     Dates: start: 19980701
  5. LOSARTAN POTASSIUM [Concomitant]
     Dates: start: 20031110
  6. VIAGRA [Concomitant]
     Dates: start: 20030709
  7. FUROSEMIDE [Concomitant]
     Dates: start: 20040602
  8. PENTOXIFYLLINE [Concomitant]
     Dates: start: 20040527
  9. TRAZODONE HCL [Concomitant]
     Dates: start: 20020412
  10. PRAVASTATIN [Concomitant]
     Dates: start: 20040806

REACTIONS (2)
  - GLOMERULONEPHRITIS MEMBRANOUS [None]
  - LOW DENSITY LIPOPROTEIN INCREASED [None]
